FAERS Safety Report 21113254 (Version 1)
Quarter: 2022Q3

REPORT INFORMATION
  Report Type: Spontaneous
  Country: US (occurrence: US)
  Receive Date: 20220721
  Receipt Date: 20220721
  Transmission Date: 20221027
  Serious: No
  Sender: FDA-Public Use
  Company Number: US-INSUD PHARMA-2207US02806

PATIENT

DRUGS (1)
  1. VOLNEA [Suspect]
     Active Substance: DESOGESTREL\ETHINYL ESTRADIOL
     Indication: Product used for unknown indication
     Dosage: UNKNOWN
     Route: 048
     Dates: start: 202207

REACTIONS (6)
  - Muscle tightness [Recovered/Resolved]
  - Pain in extremity [Recovering/Resolving]
  - Pain [Recovered/Resolved]
  - Muscle atrophy [Unknown]
  - Muscle spasms [Unknown]
  - Nail disorder [Unknown]

NARRATIVE: CASE EVENT DATE: 20220701
